FAERS Safety Report 8738794 (Version 2)
Quarter: 2012Q4

REPORT INFORMATION
  Report Type: 
  Country: IT (occurrence: IT)
  Receive Date: 20120823
  Receipt Date: 20120913
  Transmission Date: 20130627
  Serious: Yes (Hospitalization)
  Sender: FDA-Public Use
  Company Number: IT-BRISTOL-MYERS SQUIBB COMPANY-16852816

PATIENT
  Age: 84 Year
  Sex: Male

DRUGS (6)
  1. COUMADIN TABS 5 MG [Suspect]
     Indication: ATRIAL FIBRILLATION
     Route: 048
     Dates: start: 20120726, end: 20120810
  2. BISOPROLOL HEMIFUMARATE [Concomitant]
  3. FUROSEMIDE [Concomitant]
  4. LORAZEPAM [Concomitant]
  5. PANTOPRAZOLE [Concomitant]
  6. POLASE [Concomitant]
     Indication: NUTRITIONAL SUPPORT

REACTIONS (2)
  - Hypocoagulable state [Recovering/Resolving]
  - Anaemia [Recovering/Resolving]
